FAERS Safety Report 5499729-6 (Version None)
Quarter: 2007Q4

REPORT INFORMATION
  Report Type: 
  Country: None (occurrence: None)
  Receive Date: 20071026
  Receipt Date: 20071009
  Transmission Date: 20080405
  Serious: No
  Sender: FDA-Public Use
  Company Number: US-BOEHRINGER INGELHEIM PHARMACEUTICALS, INC.-2007-BP-22425BP

PATIENT
  Age: 71 Year
  Sex: Male

DRUGS (8)
  1. FLOMAX [Suspect]
     Indication: BENIGN PROSTATIC HYPERPLASIA
     Route: 048
     Dates: start: 20070901
  2. ULTRAFLEX [Concomitant]
  3. ALTACE [Concomitant]
     Indication: HYPERTENSION
  4. PROSTATA [Concomitant]
  5. ASPIRIN [Concomitant]
  6. METFORMIN [Concomitant]
     Indication: DIABETES MELLITUS
  7. METOPROLOL [Concomitant]
     Indication: HYPERTENSION
  8. OMEPRAZOLE [Concomitant]
     Indication: GASTROOESOPHAGEAL REFLUX DISEASE

REACTIONS (1)
  - THERAPEUTIC RESPONSE DECREASED [None]
